FAERS Safety Report 18590493 (Version 1)
Quarter: 2020Q4

REPORT INFORMATION
  Report Type: Report from Study
  Country: BR (occurrence: BR)
  Receive Date: 20201208
  Receipt Date: 20201208
  Transmission Date: 20210114
  Serious: Yes (Other)
  Sender: FDA-Public Use
  Company Number: BR-TAKEDA-2018TUS002178

PATIENT
  Age: 44 Year
  Sex: Female

DRUGS (4)
  1. VITAMIN E                          /00110501/ [Concomitant]
     Active Substance: TOCOPHEROL
     Dosage: UNK
  2. VITAMIN B12 [Concomitant]
     Active Substance: CYANOCOBALAMIN
     Dosage: UNK
  3. VITAMIN D NOS [Concomitant]
     Active Substance: VITAMIN D NOS
     Dosage: UNK
  4. VEDOLIZUMAB [Suspect]
     Active Substance: VEDOLIZUMAB
     Indication: COLITIS ULCERATIVE
     Dosage: 300 MILLIGRAM
     Route: 042
     Dates: start: 20170113

REACTIONS (6)
  - Back pain [Unknown]
  - Product dose omission issue [Unknown]
  - Gastric disorder [Unknown]
  - Arthralgia [Unknown]
  - Gastroenteritis clostridial [Unknown]
  - Off label use [Unknown]

NARRATIVE: CASE EVENT DATE: 20170310
